FAERS Safety Report 7449772-2 (Version None)
Quarter: 2011Q2

REPORT INFORMATION
  Report Type: 
  Country: None (occurrence: None)
  Receive Date: 20110502
  Receipt Date: 20110420
  Transmission Date: 20111010
  Serious: Yes (Hospitalization)
  Sender: FDA-Public Use
  Company Number: AU-RANBAXY-2011US-43943

PATIENT
  Age: 72 Year
  Sex: Female

DRUGS (2)
  1. METOCLOPRAMIDE [Interacting]
     Indication: NAUSEA
     Dosage: UNK
     Route: 065
  2. SERTRALINE [Suspect]
     Indication: DEPRESSION
     Dosage: UNK, UNK
     Route: 065

REACTIONS (4)
  - SEROTONIN SYNDROME [None]
  - DRUG INTERACTION [None]
  - NAUSEA [None]
  - TIBIA FRACTURE [None]
